FAERS Safety Report 5823947-8 (Version None)
Quarter: 2008Q3

REPORT INFORMATION
  Report Type: 
  Country: None (occurrence: None)
  Receive Date: 20080724
  Receipt Date: 20080709
  Transmission Date: 20090109
  Serious: No
  Sender: FDA-Public Use
  Company Number: 236300K07USA

PATIENT
  Age: 39 Year
  Sex: Female
  Weight: 73.4827 kg

DRUGS (4)
  1. REBIF [Suspect]
     Indication: MULTIPLE SCLEROSIS
     Dosage: 44 MCG, 3 IN 1 WEEKS, SUBCUTANEOUS
     Route: 058
     Dates: start: 20040610, end: 20070723
  2. ATENOLOL [Concomitant]
  3. GEODON (ZIPRASIDONE HYDROCHLORIDE) [Concomitant]
  4. ALLEGRA [Concomitant]

REACTIONS (4)
  - ANAEMIA [None]
  - FULL BLOOD COUNT ABNORMAL [None]
  - HEPATIC ENZYME INCREASED [None]
  - WHITE BLOOD CELL COUNT DECREASED [None]
